FAERS Safety Report 9915605 (Version 1)
Quarter: 2014Q1

REPORT INFORMATION
  Report Type: Spontaneous
  Country: US (occurrence: None)
  Receive Date: 20140219
  Receipt Date: 20140219
  Transmission Date: 20141002
  Serious: Yes (Other)
  Sender: FDA-Public Use
  Company Number: None

PATIENT
  Age: 40 Year
  Sex: Female
  Weight: 50.8 kg

DRUGS (1)
  1. BOTOX [Suspect]
     Indication: SKIN WRINKLING
     Dates: start: 20140212

REACTIONS (17)
  - Malaise [None]
  - Chills [None]
  - Pain [None]
  - Nausea [None]
  - Dry mouth [None]
  - Diarrhoea [None]
  - Pyrexia [None]
  - Renal pain [None]
  - Abdominal pain upper [None]
  - Weight decreased [None]
  - Hypophagia [None]
  - Asthenia [None]
  - Lethargy [None]
  - Headache [None]
  - Night sweats [None]
  - Influenza like illness [None]
  - Product quality issue [None]
